FAERS Safety Report 7625768-2 (Version None)
Quarter: 2011Q3

REPORT INFORMATION
  Report Type: 
  Country: None (occurrence: None)
  Receive Date: 20110721
  Receipt Date: 20110627
  Transmission Date: 20111222
  Serious: No
  Sender: FDA-Public Use
  Company Number: US-PFIZER INC-2011143873

PATIENT
  Sex: Female
  Weight: 63.492 kg

DRUGS (6)
  1. AMBIEN [Concomitant]
     Dosage: 10 MG, 1X/DAY
     Route: 048
  2. BOTOX [Concomitant]
     Indication: MIGRAINE
     Dosage: EVERY 4 MONTHS
  3. LIDODERM [Concomitant]
     Dosage: UNK
  4. LEVOTHYROXINE [Concomitant]
     Dosage: 75 UG, 1X/DAY
     Route: 048
  5. BENZYLPENICILLOYL-POLYLYSINE [Suspect]
     Dosage: UNK
  6. NIACIN [Concomitant]
     Dosage: 500 MG, DAILY
     Route: 048

REACTIONS (1)
  - HYPERSENSITIVITY [None]
